FAERS Safety Report 13739684 (Version 3)
Quarter: 2017Q3

REPORT INFORMATION
  Report Type: Report from Study
  Country: US (occurrence: US)
  Receive Date: 20170710
  Receipt Date: 20170817
  Transmission Date: 20171127
  Serious: Yes (Other)
  Sender: FDA-Public Use
  Company Number: US-AMGEN-USASL2017102675

PATIENT
  Age: 68 Year
  Sex: Female

DRUGS (3)
  1. ENBREL [Suspect]
     Active Substance: ETANERCEPT
     Indication: RHEUMATOID ARTHRITIS
     Dosage: 50 MG, QWK
     Route: 065
  2. ENBREL [Suspect]
     Active Substance: ETANERCEPT
     Dosage: 50 MG, QWK
     Route: 065
  3. ETODOLAC. [Concomitant]
     Active Substance: ETODOLAC
     Dosage: 400 MG, BID

REACTIONS (12)
  - Skin exfoliation [Unknown]
  - Dehydration [Recovering/Resolving]
  - Peripheral swelling [Unknown]
  - Hip surgery [Unknown]
  - Dry mouth [Recovering/Resolving]
  - Drug effect incomplete [Unknown]
  - Pain in extremity [Unknown]
  - Eye pruritus [Recovering/Resolving]
  - Pruritus [Not Recovered/Not Resolved]
  - Limb injury [Unknown]
  - Respiratory tract congestion [Unknown]
  - Rash papular [Recovered/Resolved]
